FAERS Safety Report 10035335 (Version 2)
Quarter: 2014Q2

REPORT INFORMATION
  Report Type: Report from Study
  Country: DE (occurrence: DE)
  Receive Date: 20140325
  Receipt Date: 20140404
  Transmission Date: 20141212
  Serious: Yes (Death, Hospitalization, Other)
  Sender: FDA-Public Use
  Company Number: DE-PFIZER INC-2014081867

PATIENT
  Age: 53 Year
  Sex: Male
  Weight: 80 kg

DRUGS (26)
  1. IRINOTECAN HCL [Suspect]
     Indication: BRAIN NEOPLASM MALIGNANT
     Dosage: 240 MG, 2X/WEEK
     Route: 042
     Dates: start: 20130531, end: 20131031
  2. BEVACIZUMAB [Suspect]
     Indication: BRAIN NEOPLASM MALIGNANT
     Dosage: 800 MG, 2X/WEEK
     Route: 042
     Dates: start: 20130531, end: 20131031
  3. TEMOZOLOMIDE [Suspect]
     Indication: BRAIN NEOPLASM MALIGNANT
     Dosage: 420 MG, CYCLIC (DAY 1- DAY 5 EVERY 28 DAY)
     Route: 048
     Dates: start: 20120621, end: 20130121
  4. CEFTRIAXONE [Concomitant]
     Dosage: 4000 MG, UNK
     Dates: start: 20120518, end: 20120526
  5. DEXAMETHASONE [Concomitant]
     Dosage: 2 MG, UNK
     Dates: start: 20120530, end: 201208
  6. DEXAMETHASONE [Concomitant]
     Dosage: 24 MG, UNK
     Dates: start: 20120516, end: 20120517
  7. DEXAMETHASONE [Concomitant]
     Dosage: 24 MG, UNK
     Dates: start: 20120518, end: 20120522
  8. DEXAMETHASONE [Concomitant]
     Dosage: 12 MG, UNK
     Dates: start: 20120523, end: 20120525
  9. DEXAMETHASONE [Concomitant]
     Dosage: 6 MG, UNK
     Dates: start: 20120526, end: 20120529
  10. DEXAMETHASONE [Concomitant]
     Dosage: 24 MG, UNK
     Dates: start: 20130419, end: 20130426
  11. DEXAMETHASONE [Concomitant]
     Dosage: 16 MG, UNK
     Dates: start: 20130531
  12. DEXAMETHASONE [Concomitant]
     Dosage: 24 MG, UNK
     Dates: start: 20130429, end: 20130530
  13. DEXAMETHASONE [Concomitant]
     Dosage: 12.7 MG, UNK
     Dates: start: 20130928, end: 20131126
  14. PANTOZOL [Concomitant]
     Dosage: 20 MG, UNK
     Dates: start: 20120516
  15. FRAGMIN P [Concomitant]
     Dosage: 2500/ IE
     Dates: start: 20120516, end: 20120531
  16. TARGIN [Concomitant]
     Dosage: TOTAL DAILY DOSE: 20/10 MG
     Dates: start: 20120518, end: 20120522
  17. NOVALGIN [Concomitant]
     Dosage: TATAL DAILY DOSE 60 DROPS
     Dates: start: 20120518, end: 20120520
  18. NOVALGIN [Concomitant]
     Dosage: UNK
     Dates: start: 20121017
  19. IBEROGAST [Concomitant]
     Dosage: UNK
     Dates: start: 201208
  20. TILIDIN [Concomitant]
     Dosage: UNK
     Dates: start: 201208, end: 201208
  21. BAYOTENSIN [Concomitant]
     Dosage: 1/PHIOLE
     Dates: start: 20120524, end: 20120524
  22. BAYOTENSIN [Concomitant]
     Dosage: 1/PHIOLE
     Dates: start: 20130823, end: 20130823
  23. TORASEMIDE [Concomitant]
     Dosage: 5 MG, UNK
     Dates: start: 20120519, end: 20120531
  24. TORASEMIDE [Concomitant]
     Dosage: 15 MG, UNK
     Dates: start: 20130419, end: 20130530
  25. TORASEMIDE [Concomitant]
     Dosage: 5 MG, UNK
     Dates: start: 20130531, end: 20130927
  26. MUCOSOLVAN [Concomitant]
     Dosage: UNK
     Dates: start: 20131017

REACTIONS (7)
  - Multi-organ failure [Fatal]
  - Muscle spasms [Fatal]
  - Hemiparesis [Not Recovered/Not Resolved]
  - Myoclonus [Recovered/Resolved with Sequelae]
  - Deep vein thrombosis [Recovering/Resolving]
  - Convulsion [Recovered/Resolved]
  - Epistaxis [Recovered/Resolved]
